FAERS Safety Report 4628795-2 (Version None)
Quarter: 2005Q2

REPORT INFORMATION
  Report Type: 
  Country: None (occurrence: None)
  Receive Date: 20050406
  Receipt Date: 20050317
  Transmission Date: 20051028
  Serious: Yes (Hospitalization)
  Sender: FDA-Public Use
  Company Number: 0510007

PATIENT
  Age: 2 Year
  Sex: Female
  Weight: 0.4536 kg

DRUGS (1)
  1. ORFADIN [Suspect]
     Indication: TYROSINAEMIA
     Dosage: 10 MILLIGRAM TWICE DAILY ORAL
     Route: 048
     Dates: start: 20030522

REACTIONS (3)
  - DEHYDRATION [None]
  - PYREXIA [None]
  - TREATMENT NONCOMPLIANCE [None]
